FAERS Safety Report 7029146-9 (Version None)
Quarter: 2010Q4

REPORT INFORMATION
  Report Type: 
  Country: None (occurrence: None)
  Receive Date: 20101005
  Receipt Date: 20100927
  Transmission Date: 20110411
  Serious: No
  Sender: FDA-Public Use
  Company Number: US-PFIZER INC-2010122801

PATIENT
  Sex: Male

DRUGS (2)
  1. AZULFIDINE [Suspect]
     Dosage: UNK
  2. NAPROXEN [Suspect]
     Indication: ARTERITIS

REACTIONS (2)
  - HEADACHE [None]
  - NECK PAIN [None]
